FAERS Safety Report 14334371 (Version 4)
Quarter: 2018Q1

REPORT INFORMATION
  Report Type: Spontaneous
  Country: US (occurrence: US)
  Receive Date: 20171228
  Receipt Date: 20180206
  Transmission Date: 20180509
  Serious: Yes (Hospitalization)
  Sender: FDA-Public Use
  Company Number: US-ACTELION-A-NJ2017-164624

PATIENT
  Age: 64 Year
  Sex: Female

DRUGS (5)
  1. UPTRAVI [Suspect]
     Active Substance: SELEXIPAG
     Indication: PRODUCT USED FOR UNKNOWN INDICATION
     Dosage: 1600 MCG, UNK
     Route: 048
  2. UPTRAVI [Suspect]
     Active Substance: SELEXIPAG
     Dosage: 800 MCG, UNK
     Route: 048
  3. UPTRAVI [Suspect]
     Active Substance: SELEXIPAG
     Dosage: 800 MCG, BID
     Route: 048
  4. AMBRISENTAN [Suspect]
     Active Substance: AMBRISENTAN
     Indication: PULMONARY HYPERTENSION
     Dosage: 10 MG, QD
     Route: 065
     Dates: start: 20120904
  5. SILDENAFIL. [Concomitant]
     Active Substance: SILDENAFIL

REACTIONS (9)
  - Pneumonia [Recovered/Resolved]
  - Oxygen saturation decreased [Unknown]
  - Dyspnoea [Unknown]
  - Headache [Unknown]
  - Myalgia [Unknown]
  - Nausea [Unknown]
  - Pyrexia [Unknown]
  - Dizziness [Unknown]
  - Tinnitus [Not Recovered/Not Resolved]
